FAERS Safety Report 5413555-5 (Version None)
Quarter: 2007Q3

REPORT INFORMATION
  Report Type: 
  Country: None (occurrence: None)
  Receive Date: 20070814
  Receipt Date: 20070803
  Transmission Date: 20080115
  Serious: Yes (Hospitalization)
  Sender: FDA-Public Use
  Company Number: DE-AVENTIS-200712051DE

PATIENT
  Age: 86 Year
  Sex: Female

DRUGS (11)
  1. TELFAST                            /01314201/ [Suspect]
     Route: 048
     Dates: start: 20070701, end: 20070714
  2. NOVODIGAL                          /00017701/ [Suspect]
     Dosage: DOSE: 0.1-0-0
     Route: 048
  3. CEFACLOR [Suspect]
     Route: 048
     Dates: start: 20070701, end: 20070701
  4. OMEPRAZOLE [Concomitant]
     Dosage: DOSE: 1-0-0
  5. GODAMED                            /00092801/ [Concomitant]
     Dosage: DOSE: 0-0-1
  6. MAGNESIUM VERLA [Concomitant]
     Dosage: DOSE: 0-0-2
  7. TEBONIN [Concomitant]
     Dosage: DOSE: NOT REPORTED
  8. LASIX [Concomitant]
     Dosage: DOSE: 1-0-1
  9. OPHTHALMOLOGICALS [Concomitant]
     Dosage: DOSE: 1-0-0
  10. CALCIUM VERLA [Concomitant]
     Dosage: DOSE: 1-0-0
  11. PANTOZOL                           /01263202/ [Concomitant]
     Indication: GASTRITIS
     Dates: start: 20070701

REACTIONS (3)
  - DRUG INTERACTION [None]
  - NAUSEA [None]
  - VENTRICULAR EXTRASYSTOLES [None]
